FAERS Safety Report 5731663-6 (Version None)
Quarter: 2008Q2

REPORT INFORMATION
  Report Type: 
  Country: None (occurrence: None)
  Receive Date: 20080508
  Receipt Date: 20080502
  Transmission Date: 20081010
  Serious: Yes (Other)
  Sender: FDA-Public Use
  Company Number: PHHY2008BR07113

PATIENT
  Sex: Female

DRUGS (7)
  1. CLONAZEPAM [Concomitant]
     Indication: OBSESSIVE-COMPULSIVE DISORDER
     Dosage: 0.5 MG, BID
     Route: 048
     Dates: start: 20040101
  2. CLONAZEPAM [Concomitant]
     Dosage: 0.5 MG, BID
     Route: 048
     Dates: start: 20061231
  3. PAROXETINE HCL [Concomitant]
     Indication: OBSESSIVE-COMPULSIVE DISORDER
     Dosage: 20 MG, QID
     Route: 048
     Dates: start: 20040101
  4. PAROXETINE HCL [Concomitant]
     Dosage: 20 MG, QID
     Route: 048
     Dates: start: 20061231
  5. TRILEPTAL [Suspect]
     Indication: CONVULSION
     Route: 048
     Dates: start: 20061231
  6. TRILEPTAL [Suspect]
     Route: 048
  7. TRILEPTAL [Suspect]
     Dosage: 300MG
     Route: 048

REACTIONS (3)
  - DELIVERY [None]
  - DRUG EXPOSURE DURING PREGNANCY [None]
  - OBSESSIVE-COMPULSIVE DISORDER [None]
